FAERS Safety Report 6029362-9 (Version None)
Quarter: 2009Q1

REPORT INFORMATION
  Report Type: 
  Country: None (occurrence: None)
  Receive Date: 20090105
  Receipt Date: 20081223
  Transmission Date: 20090719
  Serious: Yes (Death, Hospitalization)
  Sender: FDA-Public Use
  Company Number: FON_00029_2008

PATIENT
  Age: 83 Year
  Sex: Female

DRUGS (6)
  1. ROCALTROL (ROCALTROL - CALCITROL) (NOT SPECIFIED) [Suspect]
     Indication: HYPOCALCAEMIA
     Dosage: (0.5 DF TID ORAL)
     Route: 048
     Dates: start: 19660901, end: 19960917
  2. CALCIDIA (CALCIDIA - CALCIUM CARBONATE) 1.54 G (NOT SPECIFIED) [Suspect]
     Indication: DRUG USE FOR UNKNOWN INDICATION
     Dosage: (4.62 G QD ORAL)
     Route: 048
     Dates: start: 19960901, end: 19960917
  3. ZYLORIC /00003301/ [Concomitant]
  4. TEMESTA /00273201/ [Concomitant]
  5. TRIATEC /00885601/ [Concomitant]
  6. DIOSMIL (UNKNOWN) [Concomitant]

REACTIONS (3)
  - HYPERCALCAEMIA [None]
  - INFARCTION [None]
  - RENAL FAILURE [None]
